FAERS Safety Report 13570318 (Version 1)
Quarter: 2017Q2

REPORT INFORMATION
  Report Type: Spontaneous
  Country: US (occurrence: US)
  Receive Date: 20170522
  Receipt Date: 20170522
  Transmission Date: 20170830
  Serious: No
  Sender: FDA-Public Use
  Company Number: US-MAYNE PHARMA-2017MYN000410

PATIENT

DRUGS (1)
  1. NORTRIPTYLINE HYDROCHLORIDE. [Suspect]
     Active Substance: NORTRIPTYLINE HYDROCHLORIDE
     Indication: DEPRESSION
     Dosage: DAILY
     Route: 048
     Dates: start: 20170210, end: 20170224

REACTIONS (8)
  - Blood glucose increased [Recovering/Resolving]
  - Constipation [Recovering/Resolving]
  - Eye disorder [Recovering/Resolving]
  - Visual impairment [Recovering/Resolving]
  - Skin infection [Recovering/Resolving]
  - Ear disorder [Recovering/Resolving]
  - Blood pressure increased [Recovering/Resolving]
  - Peripheral swelling [None]

NARRATIVE: CASE EVENT DATE: 201702
